FAERS Safety Report 24299958 (Version 1)
Quarter: 2024Q3

REPORT INFORMATION
  Report Type: Spontaneous
  Country: US (occurrence: None)
  Receive Date: 20240908
  Receipt Date: 20240908
  Transmission Date: 20241017
  Serious: Yes (unspecified)
  Sender: Public
  Company Number: None

PATIENT
  Age: 37 Year
  Sex: Female
  Weight: 51.75 kg

DRUGS (2)
  1. SINGULAIR [Suspect]
     Active Substance: MONTELUKAST SODIUM
     Indication: Asthma
     Dosage: OTHER QUANTITY : 1 TABLET(S);?FREQUENCY : AT BEDTIME;?
     Route: 048
     Dates: start: 20240424, end: 20240825
  2. SLYND [Concomitant]
     Active Substance: DROSPIRENONE

REACTIONS (4)
  - Depression [None]
  - Intrusive thoughts [None]
  - Sleep disorder [None]
  - Panic attack [None]

NARRATIVE: CASE EVENT DATE: 20240626
